FAERS Safety Report 20520860 (Version 1)
Quarter: 2022Q1

REPORT INFORMATION
  Report Type: Spontaneous
  Country: FR (occurrence: FR)
  Receive Date: 20220225
  Receipt Date: 20220225
  Transmission Date: 20220423
  Serious: Yes (Hospitalization)
  Sender: FDA-Public Use
  Company Number: None

PATIENT
  Age: 42 Year
  Sex: Female
  Weight: 52 kg

DRUGS (4)
  1. RIASTAP [Suspect]
     Active Substance: FIBRINOGEN HUMAN
     Indication: Procedural haemorrhage
     Dosage: 2 GRAM
     Route: 041
     Dates: start: 20220202, end: 20220202
  2. ACETAMINOPHEN [Suspect]
     Active Substance: ACETAMINOPHEN
     Indication: Postoperative analgesia
     Dosage: 1 GRAM
     Route: 041
     Dates: start: 20220202, end: 20220202
  3. MORPHINE HYDROCHLORIDE [Suspect]
     Active Substance: MORPHINE HYDROCHLORIDE
     Indication: Postoperative analgesia
     Dosage: 5 MILLIGRAM
     Route: 040
     Dates: start: 20220202, end: 20220202
  4. DROPERIDOL [Suspect]
     Active Substance: DROPERIDOL
     Indication: Prophylaxis of nausea and vomiting
     Dosage: 1.25 MILLIGRAM
     Route: 041
     Dates: start: 20220202, end: 20220202

REACTIONS (3)
  - Anaphylactic shock [Recovered/Resolved]
  - No adverse event [Unknown]
  - Off label use [Unknown]

NARRATIVE: CASE EVENT DATE: 20220202
